FAERS Safety Report 9295966 (Version 1)
Quarter: 2013Q2

REPORT INFORMATION
  Report Type: Spontaneous
  Country: DK (occurrence: CA)
  Receive Date: 20130517
  Receipt Date: 20130517
  Transmission Date: 20140414
  Serious: Yes (Other)
  Sender: FDA-Public Use
  Company Number: CA-FRI-1000045206

PATIENT
  Sex: Female

DRUGS (2)
  1. ESCITALOPRAM [Suspect]
     Route: 048
  2. TOPAMAX [Suspect]
     Route: 048

REACTIONS (2)
  - Convulsion [Unknown]
  - Drug interaction [Unknown]
